FAERS Safety Report 7731345-5 (Version None)
Quarter: 2011Q3

REPORT INFORMATION
  Report Type: 
  Country: None (occurrence: None)
  Receive Date: 20110906
  Receipt Date: 20110719
  Transmission Date: 20111222
  Serious: No
  Sender: FDA-Public Use
  Company Number: US-AMGEN-USASP2011032907

PATIENT
  Age: 59 Year
  Sex: Female

DRUGS (11)
  1. VITAMIN D [Concomitant]
     Dosage: UNK
  2. ZYRTEC [Concomitant]
     Dosage: UNK
  3. MELATONIN [Concomitant]
  4. OXYCONTIN [Concomitant]
     Dosage: UNK
  5. CALCIUM CITRATE [Concomitant]
     Dosage: UNK
  6. NAPROSYN [Concomitant]
     Dosage: UNK
  7. GRAPE SEED EXTRACT [Concomitant]
  8. TAMOXIFEN CITRATE [Concomitant]
  9. XGEVA [Suspect]
     Indication: METASTASES TO BONE
     Dosage: 120 MG, Q4WK
     Route: 058
     Dates: start: 20110601, end: 20110601
  10. DILAUDID [Concomitant]
     Dosage: UNK
  11. FISH OIL [Concomitant]

REACTIONS (6)
  - HEADACHE [None]
  - DYSPNOEA [None]
  - NAUSEA [None]
  - PAIN IN JAW [None]
  - MALAISE [None]
  - PYREXIA [None]
